FAERS Safety Report 8487804 (Version 2)
Quarter: 2013Q1

REPORT INFORMATION
  Report Type: Report from Study
  Country: US (occurrence: US)
  Receive Date: 20120402
  Receipt Date: 20130228
  Transmission Date: 20140127
  Serious: No
  Sender: FDA-Public Use
  Company Number: US-ABBOTT-12P-163-0898860-00

PATIENT
  Age: 82 None
  Sex: Male
  Weight: 74 kg

DRUGS (9)
  1. ANDROGEL 1.62% [Suspect]
     Indication: BLOOD TESTOSTERONE DECREASED
     Dosage: FORM STRENGHT: 1.62 PERCENT; 2 PUMPS PER DAY
     Dates: start: 2011, end: 20121229
  2. ANDROGEL 1.62% [Suspect]
     Dosage: FORM STRENGTH: 1 PERCENT
     Dates: start: 201010, end: 201104
  3. PROCARDIA [Concomitant]
     Indication: CARDIAC DISORDER
  4. NORPACE [Concomitant]
     Indication: CARDIAC DISORDER
  5. LIMBITROL [Concomitant]
     Indication: MYOSITIS
  6. LEVOTHYROXINE [Concomitant]
     Indication: HYPOTHYROIDISM
  7. LASIX [Concomitant]
     Indication: FLUID RETENTION
  8. FLOMAX [Concomitant]
     Indication: PROSTATE CANCER
  9. ALLOPURINOL [Concomitant]
     Indication: NEUROPATHY PERIPHERAL

REACTIONS (16)
  - Blister [Unknown]
  - Feeling hot [Recovered/Resolved]
  - Feeling hot [Not Recovered/Not Resolved]
  - Ill-defined disorder [Not Recovered/Not Resolved]
  - Ill-defined disorder [Not Recovered/Not Resolved]
  - Dermatitis [Recovered/Resolved]
  - Dermatitis [Recovered/Resolved]
  - Insomnia [Unknown]
  - Hot flush [Recovered/Resolved]
  - Night sweats [Unknown]
  - Erythema [Recovered/Resolved]
  - Fatigue [Unknown]
  - Blood testosterone decreased [Unknown]
  - Blood testosterone decreased [Unknown]
  - Hot flush [Recovered/Resolved]
  - Blood testosterone decreased [Unknown]
